FAERS Safety Report 5356475-7 (Version None)
Quarter: 2007Q2

REPORT INFORMATION
  Report Type: 
  Country: None (occurrence: None)
  Receive Date: 20070530
  Receipt Date: 20070103
  Transmission Date: 20071010
  Serious: Yes (Hospitalization)
  Sender: FDA-Public Use
  Company Number: US200609004901

PATIENT
  Age: 48 Year
  Sex: Female

DRUGS (2)
  1. ZYPREXA [Suspect]
     Dates: start: 20000101, end: 20060101
  2. PAROXETINE [Concomitant]

REACTIONS (6)
  - DIABETES MELLITUS [None]
  - GLYCOSURIA [None]
  - HYPERGLYCAEMIA [None]
  - HYPERTENSION [None]
  - METABOLIC DISORDER [None]
  - PANCREATITIS [None]
